FAERS Safety Report 13141295 (Version 3)
Quarter: 2017Q1

REPORT INFORMATION
  Report Type: Report from Study
  Country: US (occurrence: US)
  Receive Date: 20170123
  Receipt Date: 20170315
  Transmission Date: 20170428
  Serious: Yes (Death, Hospitalization, Other)
  Sender: FDA-Public Use
  Company Number: US-ARIAD-2017US007600

PATIENT
  Age: 72 Year
  Sex: Male

DRUGS (2)
  1. DEFERASIROX [Concomitant]
     Active Substance: DEFERASIROX
     Indication: IRON OVERLOAD
     Dosage: UNK
     Route: 065
  2. ICLUSIG [Suspect]
     Active Substance: PONATINIB
     Indication: CHRONIC MYELOID LEUKAEMIA
     Dosage: 45 MG, QD
     Route: 048
     Dates: start: 20160218, end: 20170106

REACTIONS (25)
  - Cerebrovascular accident [Fatal]
  - Hemiparesis [Unknown]
  - Pleural effusion [Unknown]
  - Pericardial effusion [Unknown]
  - Cardio-respiratory arrest [Fatal]
  - Acute kidney injury [Unknown]
  - Pain in extremity [Unknown]
  - Cerebral infarction [Unknown]
  - Pulmonary congestion [Unknown]
  - Renal failure [Not Recovered/Not Resolved]
  - Leukocytosis [Unknown]
  - Lethargy [Unknown]
  - Lung disorder [Unknown]
  - Vascular device user [Unknown]
  - Gliosis [Unknown]
  - Sinus disorder [Unknown]
  - Peripheral swelling [Unknown]
  - Somnolence [Unknown]
  - Dysarthria [Unknown]
  - Cardiomegaly [Unknown]
  - Confusional state [Unknown]
  - Tumour lysis syndrome [Unknown]
  - Asthenia [Unknown]
  - Dyspnoea [Unknown]
  - Oedema peripheral [Unknown]

NARRATIVE: CASE EVENT DATE: 20170110
